FAERS Safety Report 10730116 (Version 4)
Quarter: 2015Q3

REPORT INFORMATION
  Report Type: Report from Study
  Country: US (occurrence: US)
  Receive Date: 20150122
  Receipt Date: 20150819
  Transmission Date: 20151125
  Serious: Yes (Other)
  Sender: FDA-Public Use
  Company Number: US-GILEAD-2015-0132974

PATIENT
  Age: 80 Year
  Sex: Female

DRUGS (4)
  1. SILDENAFIL. [Concomitant]
     Active Substance: SILDENAFIL
     Indication: PULMONARY ARTERIAL HYPERTENSION
  2. AMBRISENTAN [Suspect]
     Active Substance: AMBRISENTAN
     Indication: BLOOD PRESSURE DIASTOLIC INCREASED
  3. COUMADIN [Concomitant]
     Active Substance: WARFARIN SODIUM
  4. AMBRISENTAN [Suspect]
     Active Substance: AMBRISENTAN
     Indication: PULMONARY ARTERIAL HYPERTENSION
     Dosage: 10 MG, QD
     Route: 065
     Dates: start: 20090717

REACTIONS (6)
  - Urine output decreased [Unknown]
  - Asthenia [Unknown]
  - Pulmonary hypertension [Unknown]
  - Dizziness [Unknown]
  - Fall [Unknown]
  - Weight increased [Unknown]
